FAERS Safety Report 6683399-5 (Version None)
Quarter: 2010Q2

REPORT INFORMATION
  Report Type: 
  Country: None (occurrence: None)
  Receive Date: 20100415
  Receipt Date: 20091130
  Transmission Date: 20101027
  Serious: Yes (Other)
  Sender: FDA-Public Use
  Company Number: JP-ALLERGAN-0911619US

PATIENT
  Age: 76 Year
  Sex: Male

DRUGS (1)
  1. BOTOX [Suspect]
     Indication: BLEPHAROSPASM
     Dosage: 16 UNITS, SINGLE

REACTIONS (1)
  - EYELID FUNCTION DISORDER [None]
